FAERS Safety Report 24832060 (Version 2)
Quarter: 2025Q1

REPORT INFORMATION
  Report Type: Spontaneous
  Country: US (occurrence: US)
  Receive Date: 20250110
  Receipt Date: 20250110
  Transmission Date: 20250409
  Serious: Yes (Death, Other)
  Sender: AMGEN
  Company Number: US-AMGEN-USASP2025000712

PATIENT
  Age: 46 Year
  Sex: Female

DRUGS (2)
  1. INFLIXIMAB [Suspect]
     Active Substance: INFLIXIMAB
     Indication: Crohn^s disease
     Route: 065
  2. INFLIXIMAB [Suspect]
     Active Substance: INFLIXIMAB
     Route: 065

REACTIONS (10)
  - Illness [Fatal]
  - Pulmonary embolism [Unknown]
  - Pneumonia aspiration [Unknown]
  - Intestinal stenosis [Unknown]
  - Septic shock [Unknown]
  - Injury [Unknown]
  - Ulcer [Unknown]
  - Drug ineffective [Unknown]
  - Abdominal pain [Unknown]
  - Dyspnoea [Unknown]
